FAERS Safety Report 6635487-7 (Version None)
Quarter: 2010Q1

REPORT INFORMATION
  Report Type: 
  Country: None (occurrence: None)
  Receive Date: 20100315
  Receipt Date: 20090624
  Transmission Date: 20100710
  Serious: No
  Sender: FDA-Public Use
  Company Number: US-ABBOTT-09P-163-0582277-00

PATIENT
  Sex: Male
  Weight: 85.352 kg

DRUGS (7)
  1. DEPAKOTE [Suspect]
     Indication: CYCLOTHYMIC DISORDER
     Route: 048
     Dates: start: 20070301, end: 20090621
  2. DEPAKOTE [Suspect]
     Route: 048
     Dates: start: 20090622
  3. TRILEPTAL [Concomitant]
     Indication: CYCLOTHYMIC DISORDER
     Route: 048
     Dates: start: 20090623
  4. VYTORIN [Concomitant]
     Indication: BLOOD CHOLESTEROL INCREASED
  5. CLONIDINE [Concomitant]
     Indication: HYPERTENSION
  6. ASPIRIN [Concomitant]
     Indication: PROPHYLAXIS
     Route: 048
  7. UNISOM [Concomitant]
     Indication: SLEEP DISORDER THERAPY

REACTIONS (6)
  - BLOOD GLUCOSE INCREASED [None]
  - BLOOD KETONE BODY INCREASED [None]
  - BLOOD TRIGLYCERIDES INCREASED [None]
  - POLLAKIURIA [None]
  - THIRST [None]
  - WEIGHT DECREASED [None]
